FAERS Safety Report 7040321-X (Version None)
Quarter: 2010Q4

REPORT INFORMATION
  Report Type: 
  Country: None (occurrence: None)
  Receive Date: 20101012
  Receipt Date: 20101010
  Transmission Date: 20110411
  Serious: Yes (Other)
  Sender: FDA-Public Use
  Company Number: US-PFIZER INC-2010128815

PATIENT
  Sex: Female

DRUGS (1)
  1. FLAGYL [Suspect]
     Route: 042

REACTIONS (4)
  - ABASIA [None]
  - IMPAIRED DRIVING ABILITY [None]
  - NEUROPATHY PERIPHERAL [None]
  - PAIN [None]
